FAERS Safety Report 7402405-3 (Version None)
Quarter: 2011Q2

REPORT INFORMATION
  Report Type: 
  Country: None (occurrence: None)
  Receive Date: 20110408
  Receipt Date: 20110311
  Transmission Date: 20111010
  Serious: Yes (Other)
  Sender: FDA-Public Use
  Company Number: JP-BRISTOL-MYERS SQUIBB COMPANY-15646763

PATIENT
  Age: 6 Decade
  Sex: Female

DRUGS (5)
  1. TAXOL [Suspect]
     Indication: UTERINE CANCER
     Route: 041
  2. DOCETAXEL [Concomitant]
     Indication: UTERINE CANCER
     Dosage: INJ
  3. DOXORUBICIN HCL [Concomitant]
     Indication: UTERINE CANCER
     Dosage: INJ
  4. CARBOPLATIN [Suspect]
     Indication: UTERINE CANCER
  5. RANDA [Concomitant]
     Indication: UTERINE CANCER
     Dosage: INJ

REACTIONS (2)
  - HYPOAESTHESIA [None]
  - MAJOR DEPRESSION [None]
